FAERS Safety Report 11557814 (Version 1)
Quarter: 2015Q3

REPORT INFORMATION
  Report Type: Spontaneous
  Country: CA (occurrence: CA)
  Receive Date: 20150927
  Receipt Date: 20150927
  Transmission Date: 20151125
  Serious: Yes (Other)
  Sender: FDA-Public Use
  Company Number: CA-HOSPIRA-3021608

PATIENT
  Sex: Female

DRUGS (41)
  1. PLAQUENIL [Suspect]
     Active Substance: HYDROXYCHLOROQUINE SULFATE
     Indication: RHEUMATOID ARTHRITIS
  2. PLAQUENIL [Suspect]
     Active Substance: HYDROXYCHLOROQUINE SULFATE
  3. ACTEMRA [Suspect]
     Active Substance: TOCILIZUMAB
  4. ACTEMRA [Suspect]
     Active Substance: TOCILIZUMAB
  5. REMICADE [Suspect]
     Active Substance: INFLIXIMAB
  6. ENBREL [Suspect]
     Active Substance: ETANERCEPT
  7. SULFASALAZINE. [Suspect]
     Active Substance: SULFASALAZINE
     Indication: RHEUMATOID ARTHRITIS
  8. SULFASALAZINE. [Suspect]
     Active Substance: SULFASALAZINE
  9. SIMPONI [Suspect]
     Active Substance: GOLIMUMAB
     Indication: RHEUMATOID ARTHRITIS
  10. SIMPONI [Suspect]
     Active Substance: GOLIMUMAB
  11. ENBREL [Suspect]
     Active Substance: ETANERCEPT
     Indication: RHEUMATOID ARTHRITIS
  12. RITUXAN [Suspect]
     Active Substance: RITUXIMAB
     Indication: RHEUMATOID ARTHRITIS
  13. ARAVA [Suspect]
     Active Substance: LEFLUNOMIDE
     Indication: RHEUMATOID ARTHRITIS
  14. CORTISONE [Suspect]
     Active Substance: CORTISONE\HYDROCORTISONE
  15. CIMZIA [Suspect]
     Active Substance: CERTOLIZUMAB PEGOL
     Indication: RHEUMATOID ARTHRITIS
  16. HUMIRA [Suspect]
     Active Substance: ADALIMUMAB
  17. ORENCIA [Suspect]
     Active Substance: ABATACEPT
  18. REMICADE [Suspect]
     Active Substance: INFLIXIMAB
  19. HUMIRA [Suspect]
     Active Substance: ADALIMUMAB
     Indication: RHEUMATOID ARTHRITIS
  20. ARAVA [Suspect]
     Active Substance: LEFLUNOMIDE
  21. CIMZIA [Suspect]
     Active Substance: CERTOLIZUMAB PEGOL
  22. HUMIRA [Suspect]
     Active Substance: ADALIMUMAB
  23. FOSAMAX [Suspect]
     Active Substance: ALENDRONATE SODIUM
     Indication: PRODUCT USED FOR UNKNOWN INDICATION
  24. PREDNISONE. [Suspect]
     Active Substance: PREDNISONE
     Indication: PRODUCT USED FOR UNKNOWN INDICATION
  25. REACTINE                           /00884302/ [Suspect]
     Active Substance: CETIRIZINE HYDROCHLORIDE
     Indication: PRODUCT USED FOR UNKNOWN INDICATION
  26. PLAQUENIL [Suspect]
     Active Substance: HYDROXYCHLOROQUINE SULFATE
  27. SULFASALAZINE. [Suspect]
     Active Substance: SULFASALAZINE
  28. ARAVA [Suspect]
     Active Substance: LEFLUNOMIDE
  29. ACTEMRA [Suspect]
     Active Substance: TOCILIZUMAB
     Indication: RHEUMATOID ARTHRITIS
  30. FOLIC ACID. [Suspect]
     Active Substance: FOLIC ACID
     Indication: PRODUCT USED FOR UNKNOWN INDICATION
  31. ORENCIA [Suspect]
     Active Substance: ABATACEPT
     Indication: RHEUMATOID ARTHRITIS
  32. ORENCIA [Suspect]
     Active Substance: ABATACEPT
  33. ENBREL [Suspect]
     Active Substance: ETANERCEPT
  34. RITUXAN [Suspect]
     Active Substance: RITUXIMAB
  35. METHOTREXATE [Suspect]
     Active Substance: METHOTREXATE
     Indication: RHEUMATOID ARTHRITIS
  36. CORTISONE [Suspect]
     Active Substance: CORTISONE\HYDROCORTISONE
     Indication: RHEUMATOID ARTHRITIS
  37. REMICADE [Suspect]
     Active Substance: INFLIXIMAB
     Indication: RHEUMATOID ARTHRITIS
  38. CIMZIA [Suspect]
     Active Substance: CERTOLIZUMAB PEGOL
  39. SIMPONI [Suspect]
     Active Substance: GOLIMUMAB
  40. RITUXAN [Suspect]
     Active Substance: RITUXIMAB
  41. CORTISONE [Suspect]
     Active Substance: CORTISONE\HYDROCORTISONE

REACTIONS (5)
  - Systemic lupus erythematosus [Unknown]
  - Pemphigus [Not Recovered/Not Resolved]
  - Glossodynia [Unknown]
  - Fatigue [Unknown]
  - Alopecia [Unknown]
